FAERS Safety Report 8546382-0 (Version None)
Quarter: 2012Q3

REPORT INFORMATION
  Report Type: 
  Country: None (occurrence: None)
  Receive Date: 20120727
  Receipt Date: 20120103
  Transmission Date: 20120928
  Serious: No
  Sender: FDA-Public Use
  Company Number: US-ASTRAZENECA-2012SE00639

PATIENT
  Age: 64 Year
  Sex: Female

DRUGS (1)
  1. SEROQUEL [Suspect]
     Indication: AGGRESSION
     Dosage: 50 MG IN THE MORNING AND 150 MG IN THE EVENING
     Route: 048

REACTIONS (4)
  - OFF LABEL USE [None]
  - AGITATION [None]
  - BLOOD PRESSURE INCREASED [None]
  - DRUG DOSE OMISSION [None]
